FAERS Safety Report 8207142-3 (Version None)
Quarter: 2012Q1

REPORT INFORMATION
  Report Type: 
  Country: None (occurrence: None)
  Receive Date: 20120314
  Receipt Date: 20120311
  Transmission Date: 20120608
  Serious: No
  Sender: FDA-Public Use
  Company Number: US-PFIZER INC-2012064288

PATIENT
  Sex: Male
  Weight: 74.83 kg

DRUGS (2)
  1. CLONIDINE [Concomitant]
     Dosage: 0.1 MG, 3X/DAY
  2. IBUPROFEN (ADVIL) [Suspect]
     Indication: ABDOMINAL DISCOMFORT
     Dosage: 6000 MG, 3X/DAY
     Route: 048
     Dates: start: 20120306

REACTIONS (4)
  - DRUG INEFFECTIVE [None]
  - ABDOMINAL DISCOMFORT [None]
  - OVERDOSE [None]
  - ABDOMINAL PAIN UPPER [None]
